FAERS Safety Report 6829252-5 (Version None)
Quarter: 2010Q3

REPORT INFORMATION
  Report Type: 
  Country: None (occurrence: None)
  Receive Date: 20100709
  Receipt Date: 20070307
  Transmission Date: 20110219
  Serious: No
  Sender: FDA-Public Use
  Company Number: US-PFIZER INC-2007018758

PATIENT
  Sex: Female
  Weight: 84.37 kg

DRUGS (7)
  1. CHANTIX [Suspect]
     Indication: SMOKING CESSATION THERAPY
     Dates: start: 20070216
  2. WARFARIN SODIUM [Concomitant]
  3. DARVOCET [Concomitant]
  4. PROZAC [Concomitant]
  5. REQUIP [Concomitant]
  6. CRESTOR [Concomitant]
  7. WELLBUTRIN [Concomitant]

REACTIONS (3)
  - ABDOMINAL PAIN UPPER [None]
  - DIARRHOEA [None]
  - VIRAL INFECTION [None]
